FAERS Safety Report 4835402-2 (Version None)
Quarter: 2005Q4

REPORT INFORMATION
  Report Type: 
  Country: None (occurrence: None)
  Receive Date: 20051118
  Receipt Date: 20051109
  Transmission Date: 20060501
  Serious: Yes (Other)
  Sender: FDA-Public Use
  Company Number: 200513333BCC

PATIENT
  Age: 76 Year
  Sex: Female
  Weight: 78.9259 kg

DRUGS (5)
  1. ALEVE [Suspect]
     Indication: ARTHRALGIA
     Dosage: 220 MG, ONCE, ORAL
     Route: 048
     Dates: start: 20050808
  2. ALEVE [Suspect]
     Indication: FIBROMYALGIA
     Dosage: 220 MG, ONCE, ORAL
     Route: 048
     Dates: start: 20050808
  3. NORVASC [Concomitant]
  4. ZOLOFT [Concomitant]
  5. ZYRTEC [Concomitant]

REACTIONS (5)
  - ABDOMINAL PAIN UPPER [None]
  - CHEST PAIN [None]
  - DIARRHOEA [None]
  - HYPERHIDROSIS [None]
  - PAIN IN EXTREMITY [None]
